FAERS Safety Report 6027203-7 (Version None)
Quarter: 2009Q1

REPORT INFORMATION
  Report Type: 
  Country: None (occurrence: None)
  Receive Date: 20090105
  Receipt Date: 20081223
  Transmission Date: 20090719
  Serious: Yes (Death)
  Sender: FDA-Public Use
  Company Number: BR-PFIZER INC-2008067524

PATIENT

DRUGS (1)
  1. SUNITINIB MALATE [Suspect]
     Indication: RENAL CELL CARCINOMA
     Route: 048
     Dates: start: 20050622, end: 20080729

REACTIONS (1)
  - MYOCARDIAL INFARCTION [None]
